FAERS Safety Report 15249123 (Version 1)
Quarter: 2018Q3

REPORT INFORMATION
  Report Type: Spontaneous
  Country: US (occurrence: US)
  Receive Date: 20180807
  Receipt Date: 20180807
  Transmission Date: 20181010
  Serious: Yes (Other)
  Sender: FDA-Public Use
  Company Number: US-JNJFOC-20180740639

PATIENT
  Sex: Female
  Weight: 86.18 kg

DRUGS (3)
  1. NORCO [Concomitant]
     Active Substance: ACETAMINOPHEN\HYDROCODONE BITARTRATE
     Indication: PAIN
     Route: 065
  2. REMICADE [Suspect]
     Active Substance: INFLIXIMAB
     Indication: CROHN^S DISEASE
     Route: 042
  3. SELDANE [Concomitant]
     Active Substance: TERFENADINE
     Indication: BACK PAIN
     Route: 065

REACTIONS (2)
  - Intervertebral disc protrusion [Unknown]
  - Post procedural infection [Unknown]

NARRATIVE: CASE EVENT DATE: 2018
